FAERS Safety Report 8477668-6 (Version None)
Quarter: 2012Q2

REPORT INFORMATION
  Report Type: 
  Country: None (occurrence: None)
  Receive Date: 20120629
  Receipt Date: 20120626
  Transmission Date: 20120825
  Serious: Yes (Death)
  Sender: FDA-Public Use
  Company Number: AU-B.I. PHARMACEUTICALS,INC./RIDGEFIELD-2012-AU-01162AU

PATIENT
  Sex: Female

DRUGS (6)
  1. FELODUR [Concomitant]
  2. NEXIUM [Concomitant]
  3. PRADAXA [Suspect]
     Indication: ATRIAL FIBRILLATION
  4. VITAMIN D [Concomitant]
  5. PRADAXA [Suspect]
     Indication: CEREBROVASCULAR ACCIDENT PROPHYLAXIS
  6. IRBESARTAN AND HYDROCHLOROTHIAZIDE [Concomitant]

REACTIONS (2)
  - MYOCARDIAL INFARCTION [None]
  - ANAEMIA [None]
